FAERS Safety Report 4672662-5 (Version None)
Quarter: 2005Q2

REPORT INFORMATION
  Report Type: 
  Country: None (occurrence: None)
  Receive Date: 20050524
  Receipt Date: 20050316
  Transmission Date: 20051028
  Serious: Yes (Disabling)
  Sender: FDA-Public Use
  Company Number: AU-MERCK-0503AUS00171

PATIENT
  Age: 58 Year
  Sex: Female

DRUGS (8)
  1. ZETIA [Suspect]
     Indication: HYPERCHOLESTEROLAEMIA
     Route: 048
     Dates: start: 20041201, end: 20050218
  2. ATORVASTATIN CALCIUM [Concomitant]
     Route: 065
  3. PRAVASTATIN SODIUM [Concomitant]
     Route: 065
  4. WARFARIN [Suspect]
     Route: 065
  5. OMEPRAZOLE MAGNESIUM [Concomitant]
     Route: 065
  6. ESTRADIOL VALERATE [Concomitant]
     Route: 065
  7. FLUTICASONE PROPIONATE [Concomitant]
     Route: 065
  8. ALBUTEROL [Concomitant]
     Route: 065

REACTIONS (6)
  - CHANGE OF BOWEL HABIT [None]
  - INSOMNIA [None]
  - INTERNATIONAL NORMALISED RATIO FLUCTUATION [None]
  - MENTAL DISORDER [None]
  - MOOD ALTERED [None]
  - PALPITATIONS [None]
